FAERS Safety Report 23068718 (Version 2)
Quarter: 2023Q4

REPORT INFORMATION
  Report Type: Report from Study
  Country: BR (occurrence: BR)
  Receive Date: 20231016
  Receipt Date: 20231018
  Transmission Date: 20240109
  Serious: Yes (Disabling, Other)
  Sender: FDA-Public Use
  Company Number: BR-MYLANLABS-2023M1105556

PATIENT
  Age: 63 Year
  Sex: Female

DRUGS (13)
  1. LYRICA [Suspect]
     Active Substance: PREGABALIN
     Indication: Neuralgia
     Dosage: 150 MILLIGRAM, BID (1 CAPSULE IN THE MORNING AND 1 CAPSULE AT NIGHT)
     Route: 048
     Dates: start: 2011
  2. LYRICA [Suspect]
     Active Substance: PREGABALIN
     Indication: Fibromyalgia
  3. LYRICA [Suspect]
     Active Substance: PREGABALIN
     Indication: Neuralgia
     Dosage: 75 MILLIGRAM, BID (1 CAPSULE IN THE MORNING AND 1 CAPSULE AT NIGHT )
     Route: 048
  4. LYRICA [Suspect]
     Active Substance: PREGABALIN
     Indication: Fibromyalgia
     Dosage: 75 MILLIGRAM, QD (AT NIGHT)
     Route: 048
  5. SERTRALINE HYDROCHLORIDE [Concomitant]
     Active Substance: SERTRALINE HYDROCHLORIDE
     Indication: Anxiety
     Dosage: 50 MILLIGRAM
     Route: 065
  6. SERTRALINE HYDROCHLORIDE [Concomitant]
     Active Substance: SERTRALINE HYDROCHLORIDE
     Indication: Insomnia
  7. PURAN [Concomitant]
     Active Substance: LEVOTHYROXINE SODIUM
     Indication: Hypothyroidism
     Dosage: 50 MICROGRAM, QD (AM)
     Route: 065
  8. ALPRAZOLAM [Concomitant]
     Active Substance: ALPRAZOLAM
     Indication: Poor quality sleep
     Dosage: QD
     Route: 065
  9. ALPRAZOLAM [Concomitant]
     Active Substance: ALPRAZOLAM
     Indication: Relaxation therapy
  10. ROSUVASTATIN CALCIUM [Concomitant]
     Active Substance: ROSUVASTATIN CALCIUM
     Indication: Ischaemic heart disease prophylaxis
     Dosage: 5 MILLIGRAM, QD
     Route: 065
  11. VITAMIN D [Concomitant]
     Active Substance: VITAMIN D NOS
     Dosage: UNK
     Route: 065
  12. METFORMIN HYDROCHLORIDE [Concomitant]
     Active Substance: METFORMIN HYDROCHLORIDE
     Indication: Blood glucose abnormal
     Dosage: QD
     Route: 065
  13. ALLOPURINOL [Concomitant]
     Active Substance: ALLOPURINOL
     Dosage: 100 MILLIGRAM, QD
     Route: 065

REACTIONS (16)
  - Disability [Not Recovered/Not Resolved]
  - Cataract [Recovered/Resolved]
  - Ligament rupture [Unknown]
  - Blood pressure increased [Unknown]
  - Blood glucose abnormal [Unknown]
  - Skin discolouration [Unknown]
  - Nervousness [Unknown]
  - Weight increased [Unknown]
  - Pain in extremity [Unknown]
  - Insomnia [Unknown]
  - Drug ineffective [Not Recovered/Not Resolved]
  - Medication error [Not Recovered/Not Resolved]
  - Underdose [Not Recovered/Not Resolved]
  - Intentional product misuse [Not Recovered/Not Resolved]
  - Hypothyroidism [Unknown]
  - Poor quality sleep [Unknown]

NARRATIVE: CASE EVENT DATE: 20221204
